FAERS Safety Report 4609110-7 (Version None)
Quarter: 2005Q2

REPORT INFORMATION
  Report Type: 
  Country: None (occurrence: None)
  Receive Date: 20050301
  Receipt Date: 20040920
  Transmission Date: 20051028
  Serious: Yes (Other)
  Sender: FDA-Public Use
  Company Number: 239426

PATIENT
  Sex: Female

DRUGS (2)
  1. PRANDIN [Suspect]
     Indication: INSULIN-REQUIRING TYPE II DIABETES MELLITUS
     Dosage: 2 TAB QD PER ORAL
     Route: 048
     Dates: start: 20040701
  2. INSULIN [Concomitant]

REACTIONS (5)
  - DRY MOUTH [None]
  - FATIGUE [None]
  - HEPATIC ENZYME ABNORMAL [None]
  - HUNGER [None]
  - VISION BLURRED [None]
